FAERS Safety Report 18300389 (Version 1)
Quarter: 2020Q3

REPORT INFORMATION
  Report Type: Spontaneous
  Country: US (occurrence: US)
  Receive Date: 20200922
  Receipt Date: 20200922
  Transmission Date: 20201103
  Serious: No
  Sender: FDA-Public Use
  Company Number: None

PATIENT
  Age: 48 Year
  Sex: Male
  Weight: 92.25 kg

DRUGS (1)
  1. TESTOSTERONE GEL 1% [Suspect]
     Active Substance: TESTOSTERONE
     Indication: BLOOD TESTOSTERONE DECREASED
     Dosage: ?          QUANTITY:1 50 MG TUBE;?
     Route: 061
     Dates: start: 20200915, end: 20200921

REACTIONS (2)
  - Rash [None]
  - Product quality issue [None]

NARRATIVE: CASE EVENT DATE: 20200921
